FAERS Safety Report 7161554-8 (Version None)
Quarter: 2010Q4

REPORT INFORMATION
  Report Type: 
  Country: None (occurrence: None)
  Receive Date: 20101215
  Receipt Date: 20101202
  Transmission Date: 20110411
  Serious: Yes (Other)
  Sender: FDA-Public Use
  Company Number: PHHY2010US51952

PATIENT
  Sex: Female

DRUGS (2)
  1. EXJADE [Suspect]
     Indication: HEREDITARY SPHEROCYTOSIS
     Dosage: 375 MG, QD
     Route: 048
     Dates: end: 20100910
  2. EXJADE [Suspect]
     Dosage: 500 MG, UNK
     Route: 048

REACTIONS (6)
  - CORRECTIVE LENS USER [None]
  - EAR PAIN [None]
  - EYE DISORDER [None]
  - EYE PRURITUS [None]
  - SERUM FERRITIN INCREASED [None]
  - SPINAL DISORDER [None]
